FAERS Safety Report 5700262-4 (Version None)
Quarter: 2008Q2

REPORT INFORMATION
  Report Type: 
  Country: None (occurrence: None)
  Receive Date: 20080410
  Receipt Date: 20080328
  Transmission Date: 20081010
  Serious: Yes (Death)
  Sender: FDA-Public Use
  Company Number: FR-PFIZER INC-2007072288

PATIENT
  Sex: Female
  Weight: 48.7 kg

DRUGS (5)
  1. CHAMPIX [Suspect]
     Indication: SMOKING CESSATION THERAPY
     Dosage: DAILY DOSE:2MG
     Route: 048
  2. ALL OTHER THERAPEUTIC PRODUCTS [Concomitant]
  3. MUXOL /FRA/ [Concomitant]
  4. CEFACLOR [Concomitant]
     Indication: BRONCHITIS
     Dosage: DAILY DOSE:1000MG
     Route: 048
  5. FLUISEDAL [Concomitant]
     Indication: COUGH
     Route: 048

REACTIONS (8)
  - ASTHENIA [None]
  - BRONCHITIS [None]
  - CARDIAC ARREST [None]
  - CHEST PAIN [None]
  - HYPERKALAEMIA [None]
  - MUSCLE FATIGUE [None]
  - MYOCARDIAL INFARCTION [None]
  - RESPIRATORY ARREST [None]
